FAERS Safety Report 5610378-9 (Version None)
Quarter: 2008Q1

REPORT INFORMATION
  Report Type: 
  Country: None (occurrence: None)
  Receive Date: 20080128
  Receipt Date: 20080114
  Transmission Date: 20080703
  Serious: Yes (Hospitalization)
  Sender: FDA-Public Use
  Company Number: CLOF-1000032

PATIENT
  Age: 59 Year
  Sex: Male

DRUGS (6)
  1. CLOFARABINE AND/OR ARA-C (CODE NOT BROKEN) SOLUTION FOR INFUSION [Suspect]
     Indication: MYELOID LEUKAEMIA
     Dosage: 40 MG/M2, 2QD, INTRAVENOUS; 40 MG/M2, ONCE, INTRAVENOUS; 1 G/M2, ONCE, INTRAVENOUS; INTRAVENOUS
     Route: 042
     Dates: start: 20071029, end: 20071101
  2. CLOFARABINE AND/OR ARA-C (CODE NOT BROKEN) SOLUTION FOR INFUSION [Suspect]
     Indication: MYELOID LEUKAEMIA
     Dosage: 40 MG/M2, 2QD, INTRAVENOUS; 40 MG/M2, ONCE, INTRAVENOUS; 1 G/M2, ONCE, INTRAVENOUS; INTRAVENOUS
     Route: 042
     Dates: start: 20071105, end: 20071105
  3. CLOFARABINE AND/OR ARA-C (CODE NOT BROKEN) SOLUTION FOR INFUSION [Suspect]
     Indication: MYELOID LEUKAEMIA
     Dosage: 40 MG/M2, 2QD, INTRAVENOUS; 40 MG/M2, ONCE, INTRAVENOUS; 1 G/M2, ONCE, INTRAVENOUS; INTRAVENOUS
     Route: 042
     Dates: start: 20071105, end: 20071105
  4. CLOFARABINE AND/OR ARA-C (CODE NOT BROKEN) SOLUTION FOR INFUSION [Suspect]
     Indication: MYELOID LEUKAEMIA
     Dosage: 40 MG/M2, 2QD, INTRAVENOUS; 40 MG/M2, ONCE, INTRAVENOUS; 1 G/M2, ONCE, INTRAVENOUS; INTRAVENOUS
     Route: 042
     Dates: start: 20071126, end: 20071130
  5. CLOFARABINE AND/OR ARA-C (CODE NOT BROKEN) SOLUTION FOR INFUSION [Suspect]
     Indication: MYELOID LEUKAEMIA
     Dosage: 40 MG/M2, 2QD, INTRAVENOUS; 40 MG/M2, ONCE, INTRAVENOUS; 1 G/M2, ONCE, INTRAVENOUS; INTRAVENOUS
     Route: 042
     Dates: start: 20071126, end: 20071130
  6. CYTARABINE [Suspect]
     Indication: MYELOID LEUKAEMIA
     Dosage: 1 G/M2
     Dates: start: 20071029, end: 20071101

REACTIONS (9)
  - BACTERIAL INFECTION [None]
  - CHEST PAIN [None]
  - DRUG EFFECT DECREASED [None]
  - FLUID OVERLOAD [None]
  - HERPES ZOSTER [None]
  - PLEURAL EFFUSION [None]
  - PNEUMONIA [None]
  - PYREXIA [None]
  - THROMBOCYTOPENIA [None]
